FAERS Safety Report 4962949-0 (Version None)
Quarter: 2006Q1

REPORT INFORMATION
  Report Type: 
  Country: None (occurrence: None)
  Receive Date: 20060331
  Receipt Date: 20060314
  Transmission Date: 20060701
  Serious: Yes (Disabling)
  Sender: FDA-Public Use
  Company Number: 34246

PATIENT

DRUGS (1)
  1. MIOSTAT [Suspect]
     Indication: MIOSIS
     Dosage: IO
     Route: 031

REACTIONS (5)
  - DRUG EFFECT DECREASED [None]
  - GLARE [None]
  - HALO VISION [None]
  - MYDRIASIS [None]
  - POST PROCEDURAL COMPLICATION [None]
